FAERS Safety Report 11840840 (Version 2)
Quarter: 2015Q4

REPORT INFORMATION
  Report Type: Spontaneous
  Country: CN (occurrence: CN)
  Receive Date: 20151216
  Receipt Date: 20151228
  Transmission Date: 20160305
  Serious: Yes (Death)
  Sender: FDA-Public Use
  Company Number: CN-OTSUKA-2015_016816

PATIENT
  Age: 73 Year
  Sex: Male

DRUGS (5)
  1. DACOGEN [Suspect]
     Active Substance: DECITABINE
     Dosage: 33 MG, 1 IN 1 DAY
     Route: 042
     Dates: start: 20140718, end: 20140722
  2. DACOGEN [Suspect]
     Active Substance: DECITABINE
     Dosage: 32.6 MG, 1 IN 1 DAY
     Route: 042
     Dates: start: 20140618, end: 20140622
  3. DACOGEN [Suspect]
     Active Substance: DECITABINE
     Dosage: 33 MG,  1 IN 1 DAY
     Dates: start: 20140818, end: 20140822
  4. DACOGEN [Suspect]
     Active Substance: DECITABINE
     Dosage: 36 MG, 1 IN 1 DAY
     Route: 042
     Dates: end: 20141127
  5. DACOGEN [Suspect]
     Active Substance: DECITABINE
     Indication: ACUTE MYELOID LEUKAEMIA
     Dosage: 32.4 MG,1 IN 1 DAY 0216-0225
     Route: 042
     Dates: start: 20140522, end: 20140531

REACTIONS (3)
  - Acute myeloid leukaemia [Fatal]
  - Pneumonia [Fatal]
  - Lung neoplasm malignant [Fatal]

NARRATIVE: CASE EVENT DATE: 20151110
